FAERS Safety Report 20498945 (Version 1)
Quarter: 2022Q1

REPORT INFORMATION
  Report Type: Spontaneous
  Country: GB (occurrence: GB)
  Receive Date: 20220222
  Receipt Date: 20220222
  Transmission Date: 20220423
  Serious: Yes (Disabling, Other)
  Sender: FDA-Public Use
  Company Number: GB-MHRA-MED-202202150911259870-WS4AL

PATIENT
  Sex: Female

DRUGS (1)
  1. BETAMETHASONE DIPROPIONATE [Suspect]
     Active Substance: BETAMETHASONE DIPROPIONATE
     Dates: end: 20220214

REACTIONS (7)
  - Topical steroid withdrawal reaction [Unknown]
  - Eczema [Unknown]
  - Skin exfoliation [Unknown]
  - Rash pruritic [Unknown]
  - Skin fissures [Unknown]
  - Skin weeping [Unknown]
  - Eczema asteatotic [Unknown]

NARRATIVE: CASE EVENT DATE: 20200101
